FAERS Safety Report 5006255-7 (Version None)
Quarter: 2006Q2

REPORT INFORMATION
  Report Type: 
  Country: None (occurrence: None)
  Receive Date: 20060515
  Receipt Date: 20060505
  Transmission Date: 20061013
  Serious: Yes (Other)
  Sender: FDA-Public Use
  Company Number: 2006060581

PATIENT
  Age: 46 Year
  Sex: Female
  Weight: 58.9676 kg

DRUGS (4)
  1. BENADRYL [Suspect]
     Indication: HYPERSENSITIVITY
     Dosage: 1 TABLET 2-3X A DAY, ORAL
     Route: 048
     Dates: end: 20060410
  2. ANALGESICS [Concomitant]
  3. CLONAZEPAM [Concomitant]
  4. OXYCODONE [Concomitant]

REACTIONS (4)
  - BLOOD POTASSIUM DECREASED [None]
  - DRUG SCREEN POSITIVE [None]
  - LOSS OF CONSCIOUSNESS [None]
  - POST-TRAUMATIC STRESS DISORDER [None]
